FAERS Safety Report 18062126 (Version 8)
Quarter: 2022Q2

REPORT INFORMATION
  Report Type: Spontaneous
  Country: US (occurrence: US)
  Receive Date: 20200723
  Receipt Date: 20220405
  Transmission Date: 20220721
  Serious: No
  Sender: FDA-Public Use
  Company Number: US-PFIZER INC-2020281124

PATIENT
  Age: 27 Year
  Sex: Female

DRUGS (1)
  1. IBRANCE [Suspect]
     Active Substance: PALBOCICLIB
     Dosage: 125 MG, CYCLIC
     Dates: start: 20200601, end: 20210815

REACTIONS (7)
  - Neoplasm progression [Unknown]
  - Constipation [Recovered/Resolved]
  - Hot flush [Recovered/Resolved]
  - Energy increased [Unknown]
  - Contusion [Unknown]
  - Nausea [Unknown]
  - Fatigue [Unknown]

NARRATIVE: CASE EVENT DATE: 20200101
